FAERS Safety Report 9262695 (Version 1)
Quarter: 2013Q2

REPORT INFORMATION
  Report Type: Spontaneous
  Country: US (occurrence: None)
  Receive Date: 20130426
  Receipt Date: 20130426
  Transmission Date: 20140414
  Serious: Yes (Other)
  Sender: FDA-Public Use
  Company Number: DSU-2013-03029

PATIENT
  Sex: Female

DRUGS (1)
  1. AZOR [Suspect]
     Indication: HYPERTENSION
     Route: 048

REACTIONS (1)
  - Renal disorder [None]
